FAERS Safety Report 9297747 (Version 1)
Quarter: 2013Q2

REPORT INFORMATION
  Report Type: Spontaneous
  Country: US (occurrence: None)
  Receive Date: 20130517
  Receipt Date: 20130517
  Transmission Date: 20140414
  Serious: Yes (Hospitalization)
  Sender: FDA-Public Use
  Company Number: None

PATIENT
  Age: 69 Year
  Sex: Female

DRUGS (2)
  1. KETORALAC [Suspect]
     Dates: start: 20110303, end: 20110305
  2. METHYLPREDNISOLONE [Suspect]
     Dates: start: 20110226, end: 20110228

REACTIONS (2)
  - Antinuclear antibody positive [None]
  - Liver function test abnormal [None]
